FAERS Safety Report 19005469 (Version 1)
Quarter: 2021Q1

REPORT INFORMATION
  Report Type: Spontaneous
  Country: JP (occurrence: JP)
  Receive Date: 20210313
  Receipt Date: 20210313
  Transmission Date: 20210420
  Serious: Yes (Other)
  Sender: FDA-Public Use
  Company Number: NVSJ2021JP003874

PATIENT
  Sex: Male

DRUGS (2)
  1. AMARYL [Concomitant]
     Active Substance: GLIMEPIRIDE
     Indication: PRODUCT USED FOR UNKNOWN INDICATION
     Dosage: UNK, A SINGLE DOSE EXCEEDING THE DOCTOR^S INSTRUCTIONS
     Route: 065
  2. EQUMET [Suspect]
     Active Substance: METFORMIN HYDROCHLORIDE\VILDAGLIPTIN
     Indication: TYPE 2 DIABETES MELLITUS
     Dosage: UNK, A SINGLE DOSE EXCEEDING THE DOCTOR^S INSTRUCTIONS, 1 DF: VILDAGLIPTIN 50 MG, METFORMIN HYDROCHL
     Route: 048

REACTIONS (5)
  - Hypoglycaemia [Recovered/Resolved]
  - Dizziness [Unknown]
  - Deep vein thrombosis [Unknown]
  - Pulmonary embolism [Unknown]
  - Wrong dose [Unknown]
